FAERS Safety Report 18874133 (Version 2)
Quarter: 2021Q2

REPORT INFORMATION
  Report Type: Spontaneous
  Country: JP (occurrence: JP)
  Receive Date: 20210210
  Receipt Date: 20210506
  Transmission Date: 20210717
  Serious: Yes (Other)
  Sender: FDA-Public Use
  Company Number: JP-TAKEDA-2021TUS007872

PATIENT
  Sex: Male

DRUGS (1)
  1. ICLUSIG [Suspect]
     Active Substance: PONATINIB
     Indication: CHRONIC MYELOID LEUKAEMIA
     Dosage: 15 MILLIGRAM, QD
     Route: 048

REACTIONS (1)
  - Urinary retention [Recovered/Resolved]
